FAERS Safety Report 5240216-8 (Version None)
Quarter: 2007Q1

REPORT INFORMATION
  Report Type: 
  Country: None (occurrence: None)
  Receive Date: 20061201
  Receipt Date: 20060915
  Transmission Date: 20070707
  Serious: No
  Sender: FDA-Public Use
  Company Number: 2006PV021414

PATIENT
  Age: 50 Year
  Sex: Female
  Weight: 77.1115 kg

DRUGS (4)
  1. BYETTA [Suspect]
     Indication: BLOOD GLUCOSE DECREASED
     Dosage: SEE IMAGE
     Route: 058
     Dates: start: 20060801, end: 20060903
  2. BYETTA [Suspect]
     Indication: HEADACHE
     Dosage: SEE IMAGE
     Route: 058
     Dates: start: 20060801, end: 20060903
  3. BYETTA [Suspect]
     Indication: BLOOD GLUCOSE DECREASED
     Dosage: SEE IMAGE
     Route: 058
     Dates: start: 20060904
  4. BYETTA [Suspect]
     Indication: HEADACHE
     Dosage: SEE IMAGE
     Route: 058
     Dates: start: 20060904

REACTIONS (1)
  - ALOPECIA [None]
